FAERS Safety Report 9562349 (Version 2)
Quarter: 2013Q3

REPORT INFORMATION
  Report Type: Spontaneous
  Country: GB (occurrence: GB)
  Receive Date: 20130927
  Receipt Date: 20130927
  Transmission Date: 20140515
  Serious: Yes (Other)
  Sender: FDA-Public Use
  Company Number: GB-JNJFOC-20130812798

PATIENT
  Age: 72 Year
  Sex: Female

DRUGS (3)
  1. SIMPONI [Suspect]
     Indication: RHEUMATOID ARTHRITIS
     Route: 058
     Dates: start: 201308
  2. SULFASALAZINE [Concomitant]
     Indication: RHEUMATOID ARTHRITIS
     Route: 065
     Dates: start: 201005, end: 201309
  3. CERTOLIZUMAB PEGOL [Concomitant]
     Indication: RHEUMATOID ARTHRITIS
     Route: 065
     Dates: start: 201304, end: 201307

REACTIONS (2)
  - Rash pruritic [Not Recovered/Not Resolved]
  - Urticaria [Unknown]
